FAERS Safety Report 16931675 (Version 1)
Quarter: 2019Q4

REPORT INFORMATION
  Report Type: Spontaneous
  Country: CN (occurrence: CN)
  Receive Date: 20191017
  Receipt Date: 20191017
  Transmission Date: 20200122
  Serious: Yes (Hospitalization, Other)
  Sender: FDA-Public Use
  Company Number: CN-GLAXOSMITHKLINE-CN2019APC185514

PATIENT

DRUGS (2)
  1. CEFUROXIME AXETIL. [Suspect]
     Active Substance: CEFUROXIME AXETIL
     Indication: INFLAMMATION
     Dosage: 1 DF, UNK
     Dates: start: 20181207
  2. CEFUROXIME AXETIL. [Interacting]
     Active Substance: CEFUROXIME AXETIL
     Indication: CYST RUPTURE

REACTIONS (13)
  - Throat irritation [Recovered/Resolved]
  - Loss of consciousness [Recovered/Resolved]
  - Hyperhidrosis [Recovered/Resolved]
  - Coma [Recovered/Resolved]
  - Pruritus [Recovered/Resolved]
  - Head discomfort [Recovered/Resolved]
  - Anaphylactic shock [Recovered/Resolved]
  - Pulse abnormal [Recovered/Resolved]
  - Peripheral coldness [Recovered/Resolved]
  - Inferior vena cava dilatation [Unknown]
  - Drug hypersensitivity [Recovered/Resolved]
  - Dyspnoea [Recovered/Resolved]
  - Alcohol interaction [Unknown]

NARRATIVE: CASE EVENT DATE: 20181207
